FAERS Safety Report 7306041-9 (Version None)
Quarter: 2011Q1

REPORT INFORMATION
  Report Type: 
  Country: None (occurrence: None)
  Receive Date: 20110222
  Receipt Date: 20110215
  Transmission Date: 20110831
  Serious: Yes (Hospitalization)
  Sender: FDA-Public Use
  Company Number: US-PFIZER INC-2010163586

PATIENT
  Sex: Female

DRUGS (18)
  1. FAMOTIDINE [Concomitant]
     Indication: GASTROOESOPHAGEAL REFLUX DISEASE
     Dosage: UNK
     Dates: start: 20101123
  2. NEXIUM [Concomitant]
     Indication: GASTROOESOPHAGEAL REFLUX DISEASE
     Dosage: UNK
     Dates: start: 20101123
  3. DIGOXIN [Concomitant]
     Indication: ATRIAL FIBRILLATION
     Dosage: UNK
     Route: 042
     Dates: start: 20101123, end: 20101124
  4. ULTRACET [Concomitant]
     Indication: PAIN
     Dosage: UNK
     Route: 048
     Dates: start: 20101124
  5. LIDODERM [Concomitant]
     Indication: PAIN
     Dosage: UNK
     Route: 062
     Dates: start: 20101123
  6. POTASSIUM CHLORIDE [Concomitant]
     Indication: HYPOKALAEMIA
     Dosage: UNK
     Route: 042
     Dates: start: 20101123, end: 20101123
  7. ALPRAZOLAM [Concomitant]
     Indication: ANXIETY
     Dosage: UNK
     Dates: start: 20101124
  8. ALTEPLASE [Concomitant]
     Indication: DEVICE COMPONENT ISSUE
     Route: 042
  9. FENTANYL [Concomitant]
     Indication: PAIN
     Dosage: UNK
     Route: 062
     Dates: start: 20101123
  10. FUROSEMIDE [Concomitant]
     Dosage: UNK
     Route: 042
     Dates: start: 20101122, end: 20101122
  11. HYDROMORPHONE [Concomitant]
     Indication: PAIN
     Dosage: UNK
     Route: 042
     Dates: start: 20101124
  12. RELISTOR [Suspect]
     Indication: CONSTIPATION
     Dosage: 8 MG, UNK
     Route: 058
     Dates: start: 20101125
  13. DULCOLAX [Concomitant]
     Indication: CONSTIPATION
     Dosage: UNK
     Route: 048
     Dates: start: 20101123
  14. METOPROLOL [Concomitant]
     Indication: BLOOD PRESSURE INCREASED
     Dosage: UNK
     Route: 048
     Dates: start: 20101123, end: 20101124
  15. MILK OF MAGNESIA TAB [Concomitant]
     Indication: CONSTIPATION
     Dosage: UNK
     Route: 048
     Dates: start: 20101123
  16. MECLIZINE [Concomitant]
     Indication: VERTIGO
     Dosage: UNK
     Route: 048
     Dates: start: 20101123, end: 20101123
  17. METOPROLOL [Concomitant]
     Indication: ATRIAL FIBRILLATION
  18. ONDANSETRON [Concomitant]
     Indication: NAUSEA
     Dosage: UNK
     Route: 042
     Dates: start: 20101123, end: 20101124

REACTIONS (1)
  - RASH PRURITIC [None]
